FAERS Safety Report 5660931-1 (Version None)
Quarter: 2008Q1

REPORT INFORMATION
  Report Type: 
  Country: None (occurrence: None)
  Receive Date: 20080311
  Receipt Date: 20080229
  Transmission Date: 20080703
  Serious: Yes (Hospitalization, Other)
  Sender: FDA-Public Use
  Company Number: US-PFIZER INC-2008019890

PATIENT
  Sex: Male
  Weight: 78.181 kg

DRUGS (13)
  1. LIPITOR [Suspect]
     Indication: BLOOD CHOLESTEROL INCREASED
  2. COREG [Concomitant]
  3. TRICOR [Concomitant]
  4. WARFARIN SODIUM [Concomitant]
  5. DARVOCET-N 100 [Concomitant]
  6. METFORMIN HCL [Concomitant]
  7. VALIUM [Concomitant]
  8. PRILOSEC [Concomitant]
  9. AMBIEN [Concomitant]
  10. MIRALAX [Concomitant]
  11. BENTYL [Concomitant]
  12. PREDNISONE TAB [Concomitant]
  13. AMOXICILLIN [Concomitant]

REACTIONS (11)
  - ARRHYTHMIA [None]
  - ARTHRALGIA [None]
  - BLOOD CHOLESTEROL INCREASED [None]
  - DIABETES MELLITUS [None]
  - FATIGUE [None]
  - MITRAL VALVE DISEASE [None]
  - PROCEDURAL PAIN [None]
  - STAPHYLOCOCCAL INFECTION [None]
  - SUTURE RUPTURE [None]
  - VASCULAR GRAFT [None]
  - WALKING DISABILITY [None]
